FAERS Safety Report 13559090 (Version 1)
Quarter: 2017Q2

REPORT INFORMATION
  Report Type: Spontaneous
  Country: FR (occurrence: FR)
  Receive Date: 20170518
  Receipt Date: 20170518
  Transmission Date: 20170830
  Serious: Yes (Hospitalization)
  Sender: FDA-Public Use
  Company Number: FR-UCBSA-2017018369

PATIENT
  Age: 1 Year
  Sex: Male

DRUGS (4)
  1. MICROPAKINE [Concomitant]
     Active Substance: VALPROIC ACID
     Indication: PRODUCT USED FOR UNKNOWN INDICATION
     Dosage: 30 MG/KG/DAY
     Dates: start: 20160507
  2. KEPPRA [Suspect]
     Active Substance: LEVETIRACETAM
     Indication: PRODUCT USED FOR UNKNOWN INDICATION
     Dosage: DOSE ESCALATION 10 MG/KG OVER THE NEXT 4 DAYS THEN 20 MG/KG, THEN 30 MG/KG
     Route: 048
     Dates: start: 20161206, end: 201612
  3. MICROPAKINE [Concomitant]
     Active Substance: VALPROIC ACID
     Dosage: 35 MG/KG/DAY
     Dates: start: 20160627, end: 2016
  4. KEPPRA [Suspect]
     Active Substance: LEVETIRACETAM
     Dosage: 500 MG IN ONE DOSE
     Dates: start: 20161209, end: 20161209

REACTIONS (4)
  - Drug dispensing error [Unknown]
  - Balance disorder [Recovered/Resolved]
  - Nystagmus [Recovered/Resolved]
  - Accidental overdose [Unknown]

NARRATIVE: CASE EVENT DATE: 201612
